FAERS Safety Report 8614205-7 (Version None)
Quarter: 2012Q3

REPORT INFORMATION
  Report Type: 
  Country: None (occurrence: None)
  Receive Date: 20120823
  Receipt Date: 20120813
  Transmission Date: 20120928
  Serious: Yes (Hospitalization, Other)
  Sender: FDA-Public Use
  Company Number: IT-JNJFOC-20120713669

PATIENT
  Sex: Male

DRUGS (8)
  1. CYMBALTA [Suspect]
     Indication: SELF INJURIOUS BEHAVIOUR
     Route: 048
     Dates: start: 20120726, end: 20120726
  2. CYMBALTA [Suspect]
     Route: 048
  3. RISPERDAL [Suspect]
     Indication: PSYCHOTIC DISORDER
     Route: 048
  4. CYMBALTA [Suspect]
     Route: 048
  5. RISPERDAL [Suspect]
     Route: 048
     Dates: start: 20120726, end: 20120726
  6. RISPERDAL [Suspect]
     Route: 048
     Dates: start: 20120726, end: 20120726
  7. CYMBALTA [Suspect]
     Indication: PSYCHOTIC DISORDER
     Route: 048
     Dates: start: 20120726, end: 20120726
  8. RISPERDAL [Suspect]
     Indication: SELF INJURIOUS BEHAVIOUR
     Route: 048

REACTIONS (3)
  - SELF INJURIOUS BEHAVIOUR [None]
  - INCORRECT DOSE ADMINISTERED [None]
  - DRUG ABUSE [None]
